FAERS Safety Report 7371721-6 (Version None)
Quarter: 2011Q1

REPORT INFORMATION
  Report Type: 
  Country: None (occurrence: None)
  Receive Date: 20110324
  Receipt Date: 20110315
  Transmission Date: 20110831
  Serious: Yes (Hospitalization)
  Sender: FDA-Public Use
  Company Number: FR-ASTRAZENECA-2011SE15164

PATIENT
  Age: 15646 Day
  Sex: Female

DRUGS (15)
  1. PROFENID [Concomitant]
     Indication: INTERVERTEBRAL DISC PROTRUSION
     Route: 030
     Dates: start: 20101112, end: 20101126
  2. MOTILIUM [Concomitant]
     Indication: GASTRITIS
     Route: 048
     Dates: start: 20101207
  3. LEXOMIL [Concomitant]
  4. RHINOFLUIMUCIL [Concomitant]
     Indication: BRONCHITIS
  5. OMEPRAZOLE [Concomitant]
     Route: 048
     Dates: start: 20101112, end: 20101126
  6. METEOSPASMYL [Suspect]
     Route: 048
     Dates: start: 20101207, end: 20110106
  7. SERETIDE [Concomitant]
  8. NEXIUM [Suspect]
     Indication: GASTRITIS
     Route: 048
     Dates: start: 20101207, end: 20110106
  9. STRESAM [Suspect]
     Route: 048
     Dates: start: 20101101, end: 20110106
  10. GAVISCON [Suspect]
     Indication: GASTRITIS
     Route: 048
     Dates: start: 20101207, end: 20110106
  11. HELICIDINE [Concomitant]
     Indication: BRONCHITIS
  12. MIOREL [Concomitant]
     Indication: INTERVERTEBRAL DISC PROTRUSION
     Route: 048
     Dates: start: 20101112, end: 20101126
  13. ACETAMINOPHEN [Concomitant]
     Route: 048
     Dates: start: 20101229
  14. ORELOX [Suspect]
     Indication: BRONCHITIS
     Route: 048
     Dates: start: 20101229, end: 20110102
  15. LEVOTHYROX [Concomitant]

REACTIONS (2)
  - TRANSAMINASES INCREASED [None]
  - GAMMA-GLUTAMYLTRANSFERASE INCREASED [None]
